FAERS Safety Report 10095345 (Version 1)
Quarter: 2014Q2

REPORT INFORMATION
  Report Type: Spontaneous
  Country: US (occurrence: None)
  Receive Date: 20140418
  Receipt Date: 20140418
  Transmission Date: 20141212
  Serious: Yes (Other)
  Sender: FDA-Public Use
  Company Number: JPI-P-031450

PATIENT
  Age: 33 Year
  Sex: Female

DRUGS (1)
  1. XYREM [Suspect]
     Indication: NARCOLEPSY
     Route: 048
     Dates: start: 201112, end: 201209

REACTIONS (4)
  - Abortion spontaneous [None]
  - Ectopic pregnancy [None]
  - Diarrhoea [None]
  - Maternal drugs affecting foetus [None]
